FAERS Safety Report 4960798-0 (Version None)
Quarter: 2006Q2

REPORT INFORMATION
  Report Type: 
  Country: None (occurrence: None)
  Receive Date: 20060403
  Receipt Date: 20060328
  Transmission Date: 20061013
  Serious: Yes (Hospitalization)
  Sender: FDA-Public Use
  Company Number: BR-BRISTOL-MYERS SQUIBB COMPANY-13330238

PATIENT
  Age: 29 Year
  Sex: Male
  Weight: 51 kg

DRUGS (4)
  1. VIDEX [Suspect]
     Indication: HIV INFECTION
     Dates: start: 19970101
  2. LAMIVUDINE [Concomitant]
  3. ZIDOVUDINE [Concomitant]
  4. NELFINAVIR [Concomitant]

REACTIONS (8)
  - ABDOMINAL PAIN UPPER [None]
  - ANOREXIA [None]
  - BRONCHOPNEUMONIA [None]
  - DIARRHOEA [None]
  - MALAISE [None]
  - NAUSEA [None]
  - NOSOCOMIAL INFECTION [None]
  - VOMITING [None]
